FAERS Safety Report 7458473-6 (Version None)
Quarter: 2011Q2

REPORT INFORMATION
  Report Type: 
  Country: None (occurrence: None)
  Receive Date: 20110504
  Receipt Date: 20110426
  Transmission Date: 20111010
  Serious: Yes (Hospitalization)
  Sender: FDA-Public Use
  Company Number: R0006241B

PATIENT
  Sex: Female

DRUGS (5)
  1. HALOPERIDOL [Suspect]
     Indication: DELIRIUM
     Dosage: 1MG PER DAY
     Route: 048
     Dates: start: 20090820, end: 20090923
  2. AUGMENTIN '500' [Suspect]
     Indication: CYSTITIS
     Dosage: 3TAB PER DAY
     Route: 048
     Dates: start: 20090808, end: 20090816
  3. FENTANYL [Concomitant]
     Indication: PAIN
     Dosage: 8MCG PER DAY
     Dates: start: 20090818
  4. NEXIUM [Suspect]
     Indication: PROPHYLAXIS
     Dosage: 40MG PER DAY
     Route: 048
     Dates: start: 20090820, end: 20090922
  5. FLU TRIVALENT SPLIT + AS03/2 [Suspect]
     Route: 030
     Dates: start: 20080919, end: 20080919

REACTIONS (1)
  - HEPATITIS [None]
